FAERS Safety Report 5004749-1 (Version None)
Quarter: 2006Q1

REPORT INFORMATION
  Report Type: 
  Country: None (occurrence: None)
  Receive Date: 20060321
  Receipt Date: 20051130
  Transmission Date: 20060701
  Serious: No
  Sender: FDA-Public Use
  Company Number: YPA20050612

PATIENT
  Age: 96 Year
  Sex: Female

DRUGS (7)
  1. VESICARE [Suspect]
     Indication: POLLAKIURIA
     Dosage: 5 MG, ORAL
     Route: 048
     Dates: start: 20051109
  2. ADVAIR DISKUS 100/50 [Concomitant]
  3. SINGULAIR [Concomitant]
  4. PLAVIX [Concomitant]
  5. ZALTAN [Concomitant]
  6. MAGNESIUM (MAGNESIUM) [Concomitant]
  7. DOMPERIDONE (DOMPERIDONE) [Concomitant]

REACTIONS (2)
  - DIARRHOEA [None]
  - DRUG INEFFECTIVE [None]
